FAERS Safety Report 14578957 (Version 1)
Quarter: 2018Q1

REPORT INFORMATION
  Report Type: Spontaneous
  Country: FR (occurrence: FR)
  Receive Date: 20180227
  Receipt Date: 20180227
  Transmission Date: 20180509
  Serious: Yes (Death, Hospitalization)
  Sender: FDA-Public Use
  Company Number: FR-OTSUKA-DJ20081869

PATIENT

DRUGS (4)
  1. SOLIAN [Suspect]
     Active Substance: AMISULPRIDE
     Route: 065
     Dates: start: 20080407, end: 20080411
  2. ABILIFY [Suspect]
     Active Substance: ARIPIPRAZOLE
     Indication: DELUSION
     Route: 048
     Dates: start: 20080412, end: 200804
  3. ABILIFY [Suspect]
     Active Substance: ARIPIPRAZOLE
     Indication: DELUSION
     Route: 048
     Dates: start: 20080426
  4. SOLIAN [Suspect]
     Active Substance: AMISULPRIDE
     Route: 065
     Dates: start: 20080412

REACTIONS (1)
  - Hypoglycaemia [Recovered/Resolved]

NARRATIVE: CASE EVENT DATE: 20080422
